FAERS Safety Report 5376588-3 (Version None)
Quarter: 2007Q3

REPORT INFORMATION
  Report Type: 
  Country: None (occurrence: None)
  Receive Date: 20070702
  Receipt Date: 20070626
  Transmission Date: 20080115
  Serious: Yes (Life-Threatening)
  Sender: FDA-Public Use
  Company Number: JP-MERCK-0706USA01237

PATIENT
  Sex: Female

DRUGS (9)
  1. PEPCID [Suspect]
     Route: 041
     Dates: start: 20070528, end: 20070604
  2. BROACT [Concomitant]
     Indication: PERITONITIS
     Route: 041
     Dates: start: 20070528, end: 20070531
  3. GLOBULIN, IMMUNE [Concomitant]
     Indication: PERITONITIS
     Route: 041
     Dates: start: 20070529, end: 20070603
  4. FOY [Concomitant]
     Indication: DISSEMINATED INTRAVASCULAR COAGULATION
     Route: 041
     Dates: start: 20070529, end: 20070610
  5. NEUART [Concomitant]
     Indication: DISSEMINATED INTRAVASCULAR COAGULATION
     Route: 041
     Dates: start: 20070529, end: 20070531
  6. CIPROFLOXACIN [Suspect]
     Indication: PERITONITIS
     Route: 065
     Dates: start: 20070531, end: 20070605
  7. DIPRIVAN [Concomitant]
     Indication: SEDATION
     Route: 065
     Dates: start: 20070528, end: 20070607
  8. XYLOCAINE [Concomitant]
     Indication: VENTRICULAR ARRHYTHMIA
     Route: 065
     Dates: start: 20070528, end: 20070531
  9. PREDONINE [Concomitant]
     Indication: RHEUMATOID ARTHRITIS
     Route: 065
     Dates: start: 20070601, end: 20070612

REACTIONS (3)
  - BONE MARROW FAILURE [None]
  - DISSEMINATED INTRAVASCULAR COAGULATION [None]
  - PANCYTOPENIA [None]
